FAERS Safety Report 14174335 (Version 2)
Quarter: 2017Q4

REPORT INFORMATION
  Report Type: Spontaneous
  Country: US (occurrence: US)
  Receive Date: 20171109
  Receipt Date: 20171115
  Transmission Date: 20180321
  Serious: Yes (Other)
  Sender: FDA-Public Use
  Company Number: US-PFIZER INC-2016370758

PATIENT
  Age: 73 Year
  Sex: Female

DRUGS (9)
  1. IBRANCE [Suspect]
     Active Substance: PALBOCICLIB
     Dosage: 125 MG, UNK
     Route: 048
  2. PEPCID [Concomitant]
     Active Substance: FAMOTIDINE
     Dosage: 20 MG, AS NEEDED, [1 TABLET ORALLY PRN]
     Route: 048
  3. MAGNESIUM OXIDE. [Concomitant]
     Active Substance: MAGNESIUM OXIDE
     Dosage: 600 MG, 1X/DAY[1 TABLET ORALLY QD]
     Route: 048
  4. CALCIUM + VIT D [Concomitant]
     Active Substance: CALCIUM\VITAMIN D
  5. SYNTHROID [Concomitant]
     Active Substance: LEVOTHYROXINE SODIUM
     Dosage: 88 UG, 1X/DAY [1 TABLET ORALLY QD]
     Route: 048
  6. IBRANCE [Suspect]
     Active Substance: PALBOCICLIB
     Indication: BREAST CANCER METASTATIC
     Dosage: 100 MG, CYCLIC, [TAKE 1 CAPSULE BY MOUTH ONCE DAILY FOR 21 DAYS, THEN STOP FOR 7 DAYS]
     Route: 048
  7. LETROZOLE. [Concomitant]
     Active Substance: LETROZOLE
     Dosage: 2.5 MG, DAILY
     Route: 048
  8. OS-CAL ULTRA [Concomitant]
     Dosage: 1 DF, 1X/DAY [1 TABLET ORALLY QD]
     Route: 048
  9. XGEVA [Concomitant]
     Active Substance: DENOSUMAB
     Dosage: UNK [ONCE EVERY THREE MONTHS]

REACTIONS (3)
  - Nephrolithiasis [Unknown]
  - Fatigue [Unknown]
  - Leukopenia [Unknown]
